FAERS Safety Report 9363954 (Version 1)
Quarter: 2013Q2

REPORT INFORMATION
  Report Type: Report from Study
  Country: JP (occurrence: JP)
  Receive Date: 20130624
  Receipt Date: 20130624
  Transmission Date: 20140414
  Serious: No
  Sender: FDA-Public Use
  Company Number: JP-JNJFOC-20130612481

PATIENT
  Age: 49 Year
  Sex: Male
  Weight: 73 kg

DRUGS (20)
  1. DUROTEP MT [Suspect]
     Indication: PAIN
     Route: 062
     Dates: start: 20111006, end: 20111006
  2. DUROTEP MT [Suspect]
     Indication: PAIN
     Route: 062
     Dates: start: 20111007, end: 20111013
  3. DUROTEP MT [Suspect]
     Indication: PAIN
     Route: 062
     Dates: start: 20111013, end: 20111027
  4. DUROTEP MT [Suspect]
     Indication: PAIN
     Route: 062
     Dates: start: 20111027, end: 20111223
  5. MORPHINE HYDROCHLORIDE [Suspect]
     Indication: PAIN
     Route: 065
     Dates: start: 20110822
  6. MORPHINE HYDROCHLORIDE [Suspect]
     Indication: PAIN
     Route: 065
     Dates: start: 20111006
  7. MORPHINE HYDROCHLORIDE [Suspect]
     Indication: PAIN
     Route: 065
     Dates: start: 20111027
  8. MORPHINE HYDROCHLORIDE [Suspect]
     Indication: PAIN
     Route: 065
     Dates: start: 20111020
  9. MORPHINE HYDROCHLORIDE [Suspect]
     Indication: PAIN
     Route: 065
     Dates: start: 20111013
  10. PURSENNID [Concomitant]
     Route: 048
     Dates: start: 20110905
  11. MAGMITT [Concomitant]
     Route: 048
     Dates: start: 20111006
  12. ALLEGRA [Concomitant]
     Route: 048
     Dates: start: 20111110
  13. NOVAMIN [Concomitant]
     Route: 048
     Dates: start: 20111007, end: 20111013
  14. XYLOCAINE [Concomitant]
     Indication: PAIN
     Route: 065
     Dates: start: 20111124, end: 20111124
  15. XYLOCAINE [Concomitant]
     Indication: PAIN
     Route: 065
     Dates: start: 20111027, end: 20111027
  16. XYLOCAINE [Concomitant]
     Indication: PAIN
     Route: 065
     Dates: start: 20111110, end: 20111110
  17. XYLOCAINE [Concomitant]
     Indication: PAIN
     Route: 065
     Dates: start: 20111013, end: 20111013
  18. DECADRON [Concomitant]
     Indication: PAIN
     Route: 065
     Dates: start: 20111110, end: 20111110
  19. DECADRON [Concomitant]
     Indication: PAIN
     Route: 065
     Dates: start: 20111124, end: 20111124
  20. DECADRON [Concomitant]
     Indication: PAIN
     Route: 065
     Dates: start: 20111013, end: 20111013

REACTIONS (4)
  - Vomiting [Recovered/Resolved]
  - Pruritus [Not Recovered/Not Resolved]
  - Nausea [Recovered/Resolved]
  - Wrong technique in drug usage process [Unknown]
